FAERS Safety Report 24913415 (Version 1)
Quarter: 2025Q1

REPORT INFORMATION
  Report Type: Spontaneous
  Country: FR (occurrence: FR)
  Receive Date: 20250201
  Receipt Date: 20250201
  Transmission Date: 20250409
  Serious: Yes (Other)
  Sender: ACCORD
  Company Number: None

PATIENT
  Age: 62 Year
  Sex: Female

DRUGS (7)
  1. CLOZAPINE [Suspect]
     Active Substance: CLOZAPINE
     Indication: Bipolar disorder
     Dates: start: 20240902
  2. BISOPROLOL [Concomitant]
     Active Substance: BISOPROLOL
  3. CYAMEMAZINE [Concomitant]
     Active Substance: CYAMEMAZINE
  4. IPRATROPIUM BROMIDE [Concomitant]
     Active Substance: IPRATROPIUM BROMIDE
  5. IRBESARTAN [Concomitant]
     Active Substance: IRBESARTAN
  6. LEVOTHYROXINE SODIUM [Concomitant]
     Active Substance: LEVOTHYROXINE SODIUM
  7. SERTRALINE HYDROCHLORIDE [Concomitant]
     Active Substance: SERTRALINE HYDROCHLORIDE

REACTIONS (5)
  - Altered state of consciousness [Recovered/Resolved]
  - Cognitive disorder [Recovered/Resolved]
  - Asthenia [Recovered/Resolved]
  - Salivary hypersecretion [Recovered/Resolved]
  - Overdose [Recovered/Resolved]

NARRATIVE: CASE EVENT DATE: 20240923
